FAERS Safety Report 23716683 (Version 2)
Quarter: 2024Q2

REPORT INFORMATION
  Report Type: Spontaneous
  Country: JP (occurrence: JP)
  Receive Date: 20240408
  Receipt Date: 20240430
  Transmission Date: 20240716
  Serious: Yes (Other)
  Sender: FDA-Public Use
  Company Number: JP-CHUGAI-2024010629

PATIENT
  Age: 76 Year
  Sex: Female
  Weight: 65.5 kg

DRUGS (1)
  1. TECENTRIQ [Suspect]
     Active Substance: ATEZOLIZUMAB
     Indication: Non-small cell lung cancer
     Route: 065
     Dates: start: 20240306, end: 20240306

REACTIONS (3)
  - Vascular device infection [Unknown]
  - Pyrexia [Recovered/Resolved]
  - Device related infection [Unknown]

NARRATIVE: CASE EVENT DATE: 20240317
